FAERS Safety Report 14924915 (Version 4)
Quarter: 2019Q3

REPORT INFORMATION
  Report Type: Spontaneous
  Country: US (occurrence: US)
  Receive Date: 20180522
  Receipt Date: 20190819
  Transmission Date: 20191004
  Serious: Yes (Other)
  Sender: FDA-Public Use
  Company Number: US-PFIZER INC-2018203704

PATIENT
  Age: 45 Year
  Sex: Female

DRUGS (2)
  1. GEMCITABINE HYDROCHLORIDE. [Suspect]
     Active Substance: GEMCITABINE HYDROCHLORIDE
     Indication: CUTANEOUS T-CELL LYMPHOMA STAGE III
     Dosage: UNK FIRST DOSE
  2. GEMCITABINE HYDROCHLORIDE. [Suspect]
     Active Substance: GEMCITABINE HYDROCHLORIDE
     Dosage: 1000 MG/M2, SECOND DOSE
     Route: 042

REACTIONS (5)
  - Toxic epidermal necrolysis [Recovering/Resolving]
  - Off label use [Unknown]
  - Skin necrosis [Recovering/Resolving]
  - Product use in unapproved indication [Unknown]
  - Cytopenia [Recovering/Resolving]
